FAERS Safety Report 25920483 (Version 1)
Quarter: 2025Q4

REPORT INFORMATION
  Report Type: Spontaneous
  Country: US (occurrence: US)
  Receive Date: 20251014
  Receipt Date: 20251014
  Transmission Date: 20260118
  Serious: Yes (Life-Threatening, Hospitalization, Other)
  Sender: B. BRAUN MEDICAL INC.
  Company Number: US-BBM-US-BBM-202503901

PATIENT
  Age: 29 Year
  Sex: Male

DRUGS (3)
  1. MANNITOL [Suspect]
     Active Substance: MANNITOL
     Indication: Reduction of increased intracranial pressure
  2. MANNITOL [Suspect]
     Active Substance: MANNITOL
  3. LEVETIRACETAM [Concomitant]
     Active Substance: LEVETIRACETAM

REACTIONS (3)
  - Aneurysm ruptured [Recovered/Resolved]
  - Hyperkalaemia [Unknown]
  - Hyponatraemia [Unknown]
